FAERS Safety Report 7767497-0 (Version None)
Quarter: 2011Q3

REPORT INFORMATION
  Report Type: 
  Country: None (occurrence: None)
  Receive Date: 20110922
  Receipt Date: 20110817
  Transmission Date: 20111222
  Serious: No
  Sender: FDA-Public Use
  Company Number: US-BAYER-2011-064789

PATIENT
  Sex: Female

DRUGS (2)
  1. MIRENA [Suspect]
     Indication: MENORRHAGIA
     Dosage: 20 MCG/24HR, CONT
     Route: 015
     Dates: start: 20060301, end: 20110401
  2. MIRENA [Suspect]
     Indication: DYSMENORRHOEA

REACTIONS (2)
  - MEDICATION ERROR [None]
  - LIBIDO DECREASED [None]
